FAERS Safety Report 17855808 (Version 1)
Quarter: 2020Q2

REPORT INFORMATION
  Report Type: Spontaneous
  Country: US (occurrence: US)
  Receive Date: 20200603
  Receipt Date: 20200603
  Transmission Date: 20200714
  Serious: No
  Sender: FDA-Public Use
  Company Number: US-BAYER-2020-095900

PATIENT
  Sex: Female

DRUGS (2)
  1. GRISEOFULVIN. [Interacting]
     Active Substance: GRISEOFULVIN
     Route: 048
  2. MIRENA [Suspect]
     Active Substance: LEVONORGESTREL
     Indication: CONTRACEPTION
     Dosage: 20 ?G PER DAY CONTINUOUSLY
     Route: 015

REACTIONS (1)
  - Labelled drug-drug interaction medication error [None]
